FAERS Safety Report 11174520 (Version 1)
Quarter: 2015Q2

REPORT INFORMATION
  Report Type: Spontaneous
  Country: US (occurrence: None)
  Receive Date: 20150608
  Receipt Date: 20150608
  Transmission Date: 20150821
  Serious: No
  Sender: FDA-Public Use
  Company Number: None

PATIENT
  Age: 80 Year
  Sex: Female

DRUGS (4)
  1. PREDNISOLONE AC [Concomitant]
  2. TRIAMCINOLONE [Concomitant]
     Active Substance: TRIAMCINOLONE
  3. AFINITOR [Suspect]
     Active Substance: EVEROLIMUS
     Indication: NEOPLASM MALIGNANT
     Route: 048
     Dates: start: 20150317
  4. CEPHALEXIN. [Concomitant]
     Active Substance: CEPHALEXIN

REACTIONS (3)
  - Diarrhoea [None]
  - Peripheral swelling [None]
  - Rash [None]

NARRATIVE: CASE EVENT DATE: 201503
